FAERS Safety Report 6386755-8 (Version None)
Quarter: 2009Q4

REPORT INFORMATION
  Report Type: 
  Country: None (occurrence: None)
  Receive Date: 20091002
  Receipt Date: 20090929
  Transmission Date: 20100525
  Serious: Yes (Other)
  Sender: FDA-Public Use
  Company Number: A0809194A

PATIENT
  Sex: Female
  Weight: 58 kg

DRUGS (3)
  1. LAPATINIB [Suspect]
     Indication: BREAST CANCER
     Dosage: 1500MG PER DAY
     Route: 048
     Dates: start: 20070215
  2. EPIRUBICIN [Concomitant]
     Route: 042
     Dates: start: 20040325, end: 20040527
  3. CYCLOPHOSPHAMIDE [Concomitant]
     Route: 042
     Dates: start: 20040325, end: 20040527

REACTIONS (1)
  - VENTRICULAR HYPOKINESIA [None]
